FAERS Safety Report 4752697-4 (Version None)
Quarter: 2005Q3

REPORT INFORMATION
  Report Type: 
  Country: None (occurrence: None)
  Receive Date: 20050823
  Receipt Date: 20050810
  Transmission Date: 20060218
  Serious: Yes (Other)
  Sender: FDA-Public Use
  Company Number: EM2005-0381

PATIENT
  Age: 63 Year
  Sex: Male
  Weight: 79.8 kg

DRUGS (7)
  1. TOBI [Suspect]
     Indication: BRONCHIECTASIS
     Dosage: 300 MG/5ML, BID, INHALATION
     Route: 055
     Dates: start: 20050606, end: 20050805
  2. TOBI [Suspect]
     Indication: BRONCHIECTASIS
     Dosage: 300 MG/5ML, BID, INHALATION
     Route: 055
     Dates: start: 20050805
  3. ADVAIR DISKUS (SALMETEROL XINAFOATE, FLUTICASONE  PROPIONATE) [Concomitant]
  4. NEXIUM [Concomitant]
  5. NASONEX [Concomitant]
  6. ALBUTEROL [Concomitant]
  7. CIALIS [Concomitant]

REACTIONS (2)
  - ASTHENIA [None]
  - POLLAKIURIA [None]
